FAERS Safety Report 9260850 (Version 1)
Quarter: 2013Q2

REPORT INFORMATION
  Report Type: Spontaneous
  Country: US (occurrence: US)
  Receive Date: 20130429
  Receipt Date: 20130429
  Transmission Date: 20140414
  Serious: Yes (Death)
  Sender: FDA-Public Use
  Company Number: US-PFIZER INC-2013131029

PATIENT
  Age: 62 Year
  Sex: Male

DRUGS (1)
  1. RAPAMUNE [Suspect]
     Indication: HEART TRANSPLANT
     Dosage: 0.5 MG, DAILY
     Dates: start: 20110509

REACTIONS (3)
  - Lung neoplasm malignant [Fatal]
  - Cardiac disorder [Fatal]
  - Off label use [Unknown]
